FAERS Safety Report 9219458 (Version 1)
Quarter: 2013Q2

REPORT INFORMATION
  Report Type: Spontaneous
  Country: US (occurrence: US)
  Receive Date: 20130409
  Receipt Date: 20130409
  Transmission Date: 20140414
  Serious: Yes (Death, Other)
  Sender: FDA-Public Use
  Company Number: US-ROCHE-1069300

PATIENT
  Age: 62 Year
  Sex: Male
  Weight: 73.55 kg

DRUGS (7)
  1. ZELBORAF [Suspect]
     Indication: MALIGNANT MELANOMA
     Route: 048
     Dates: start: 20120506
  2. ZELBORAF [Suspect]
     Route: 048
     Dates: start: 20120504, end: 20120724
  3. PERCOCET [Concomitant]
     Indication: PAIN
     Route: 065
  4. ATIVAN [Concomitant]
     Indication: ANXIETY
     Route: 065
  5. ATARAX [Concomitant]
     Route: 065
  6. AMBIEN [Concomitant]
     Indication: INSOMNIA
     Route: 065
  7. ZOFRAN [Concomitant]
     Route: 048

REACTIONS (19)
  - Death [Fatal]
  - Squamous cell carcinoma [Not Recovered/Not Resolved]
  - Rash [Unknown]
  - Rash generalised [Not Recovered/Not Resolved]
  - Photosensitivity reaction [Not Recovered/Not Resolved]
  - Fatigue [Unknown]
  - Arthralgia [Unknown]
  - Dizziness [Unknown]
  - Sunburn [Unknown]
  - Pruritus [Unknown]
  - Local swelling [Not Recovered/Not Resolved]
  - Myalgia [Unknown]
  - Decreased appetite [Unknown]
  - Alopecia [Unknown]
  - Ageusia [Unknown]
  - Anxiety [Unknown]
  - Lymphoedema [Unknown]
  - Incision site pain [Not Recovered/Not Resolved]
  - Neoplasm [Unknown]
